FAERS Safety Report 5168737-7 (Version None)
Quarter: 2006Q4

REPORT INFORMATION
  Report Type: 
  Country: None (occurrence: None)
  Receive Date: 20061211
  Receipt Date: 20061204
  Transmission Date: 20070319
  Serious: Yes (Death, Hospitalization)
  Sender: FDA-Public Use
  Company Number: PHBS2006JP18801

PATIENT
  Age: 56 Year
  Sex: Female

DRUGS (10)
  1. CYCLOSPORINE [Suspect]
     Indication: STEM CELL TRANSPLANT
     Dosage: 3 MG/KG/D
  2. CAMPATH [Suspect]
     Indication: STEM CELL TRANSPLANT
     Dosage: 0.2 MG/KG/D
  3. CAMPATH [Suspect]
     Dosage: 0.2 MG/KG/D
  4. FLUDARABINE [Concomitant]
     Indication: STEM CELL TRANSPLANT
     Dosage: 30 MG/M2
  5. BUSULFAN [Concomitant]
     Indication: STEM CELL TRANSPLANT
     Dosage: 4 MG/KG/D
  6. IRRADIATION [Concomitant]
  7. METHOTREXATE [Concomitant]
     Indication: STEM CELL TRANSPLANT
     Dosage: 15 MG/M2
  8. METHOTREXATE [Concomitant]
     Dosage: 10 MG/M2
  9. CYCLOPHOSPHAMIDE [Concomitant]
     Indication: STEM CELL TRANSPLANT
     Dosage: 30 MG/KG/D
  10. PREDNISOLONE [Concomitant]
     Indication: STEM CELL TRANSPLANT
     Dosage: 1 MG/KG/D

REACTIONS (15)
  - BLOOD LACTATE DEHYDROGENASE INCREASED [None]
  - CAPILLARY LEAK SYNDROME [None]
  - DISSEMINATED INTRAVASCULAR COAGULATION [None]
  - FLUID RETENTION [None]
  - GRAFT VERSUS HOST DISEASE [None]
  - GRANULOCYTE COUNT DECREASED [None]
  - HAEMODIALYSIS [None]
  - HYPOTENSION [None]
  - LIFE SUPPORT [None]
  - NEUTROPHIL COUNT DECREASED [None]
  - NON-CARDIOGENIC PULMONARY OEDEMA [None]
  - PYREXIA [None]
  - RASH [None]
  - RENAL FAILURE ACUTE [None]
  - WEIGHT INCREASED [None]
